FAERS Safety Report 6169599-1 (Version None)
Quarter: 2009Q2

REPORT INFORMATION
  Report Type: 
  Country: None (occurrence: None)
  Receive Date: 20090428
  Receipt Date: 20090424
  Transmission Date: 20091009
  Serious: Yes (Hospitalization)
  Sender: FDA-Public Use
  Company Number: JP-BRISTOL-MYERS SQUIBB COMPANY-14591929

PATIENT
  Age: 85 Year
  Sex: Male

DRUGS (11)
  1. AVAPRO [Suspect]
     Indication: HYPERTENSION
     Route: 048
     Dates: start: 20090301, end: 20090314
  2. GENINAX [Suspect]
     Indication: NASOPHARYNGITIS
     Route: 048
     Dates: start: 20090309, end: 20090313
  3. DIOVAN [Suspect]
     Indication: HYPERTENSION
     Route: 048
     Dates: end: 20090409
  4. PLAVIX [Concomitant]
     Route: 048
  5. GASCON [Concomitant]
     Route: 048
  6. MUCOSTA [Concomitant]
     Route: 048
  7. NAUZELIN [Concomitant]
     Route: 048
     Dates: start: 20090403
  8. CYANOCOBALAMIN [Concomitant]
     Route: 048
  9. BASEN [Concomitant]
     Route: 048
  10. GASTER [Concomitant]
     Route: 048
  11. FOSAMAC [Concomitant]
     Route: 048

REACTIONS (1)
  - HYPOGLYCAEMIA [None]
